FAERS Safety Report 18394412 (Version 4)
Quarter: 2020Q4

REPORT INFORMATION
  Report Type: Report from Study
  Country: US (occurrence: US)
  Receive Date: 20201016
  Receipt Date: 20201224
  Transmission Date: 20210114
  Serious: Yes (Death, Hospitalization)
  Sender: FDA-Public Use
  Company Number: US-GILEAD-2020-0499053

PATIENT
  Age: 75 Year
  Sex: Male
  Weight: 92 kg

DRUGS (39)
  1. RESTORIL [CHLORMEZANONE] [Concomitant]
     Active Substance: CHLORMEZANONE
     Dosage: 15,MG,AS NECESSARY
     Route: 048
     Dates: start: 20200830
  2. TRIAMCINOLONE [Concomitant]
     Active Substance: TRIAMCINOLONE
     Dosage: 1,OTHER,AS NECESSARY
     Route: 061
     Dates: start: 20200831
  3. DIFLUCAN [Concomitant]
     Active Substance: FLUCONAZOLE
     Dosage: 400,MG,DAILY
     Route: 048
     Dates: start: 20200903
  4. NORMAL SALINE [Concomitant]
     Active Substance: SODIUM CHLORIDE
     Dosage: 1000,ML,DAILY
     Route: 042
     Dates: start: 20200904, end: 20200906
  5. FLUTICASONE PROPIONATE. [Concomitant]
     Active Substance: FLUTICASONE PROPIONATE
     Dosage: 50,OTHER,AS NECESSARY
     Route: 045
     Dates: start: 201001
  6. ZOFRAN [Concomitant]
     Active Substance: ONDANSETRON HYDROCHLORIDE
     Dosage: 8,MG,THREE TIMES DAILY
     Route: 048
     Dates: start: 20200903, end: 20200907
  7. IBUPROFEN. [Concomitant]
     Active Substance: IBUPROFEN
     Dosage: 400,MG,AS NECESSARY
     Route: 048
     Dates: start: 201912
  8. CYCLOPHOSPHAMIDE. [Suspect]
     Active Substance: CYCLOPHOSPHAMIDE
     Indication: BONE MARROW CONDITIONING REGIMEN
     Dosage: 500
     Route: 042
     Dates: start: 20200826, end: 20200828
  9. FLUDARABINE [Suspect]
     Active Substance: FLUDARABINE PHOSPHATE
     Indication: BONE MARROW CONDITIONING REGIMEN
     Dosage: 30
     Route: 042
     Dates: start: 20200826, end: 20200828
  10. TUDORZA PRESSAIR [Concomitant]
     Active Substance: ACLIDINIUM BROMIDE
     Dosage: 400,OTHER,TWICE DAILY
     Route: 055
     Dates: start: 201501
  11. DOCUSATE SODIUM [DOCUSATE SODIUM;SENNOSIDE A+B] [Concomitant]
     Dosage: 1,OTHER,AS NECESSARY
     Route: 048
     Dates: start: 20200904, end: 20200906
  12. IBRUTINIB [Suspect]
     Active Substance: IBRUTINIB
     Dosage: 420
     Route: 048
     Dates: start: 20200807, end: 20200821
  13. ATORVASTATIN CALCIUM. [Concomitant]
     Active Substance: ATORVASTATIN CALCIUM
     Dosage: 10,MG,DAILY
     Route: 048
     Dates: start: 200102
  14. ZOFRAN [Concomitant]
     Active Substance: ONDANSETRON HYDROCHLORIDE
     Dosage: 8,MG,AS NECESSARY
     Route: 048
     Dates: start: 201603
  15. MELATONIN [Concomitant]
     Active Substance: MELATONIN
     Dosage: 10,MG,AS NECESSARY
     Route: 048
     Dates: start: 20180101
  16. MESALAMINE DELAYED RELEASE [Concomitant]
     Active Substance: MESALAMINE
     Dosage: 1.2,G,AS NECESSARY
     Route: 048
     Dates: start: 20190823
  17. LOSARTAN. [Concomitant]
     Active Substance: LOSARTAN
     Dosage: 50,MG,DAILY
     Route: 048
     Dates: start: 20200221
  18. PANTOPRAZOLE [Concomitant]
     Active Substance: PANTOPRAZOLE
     Dosage: 40,MG,DAILY
     Route: 048
     Dates: start: 20200511
  19. COMPAZINE [PROCHLORPERAZINE EDISYLATE] [Concomitant]
     Active Substance: PROCHLORPERAZINE EDISYLATE
     Dosage: 10,MG,AS NECESSARY
     Route: 042
     Dates: start: 20200905, end: 20200905
  20. ACYCLOVIR [ACICLOVIR] [Concomitant]
     Active Substance: ACYCLOVIR
     Dosage: 800,MG,TWICE DAILY
     Route: 048
     Dates: start: 20200903
  21. METOPROLOL TARTRATE. [Concomitant]
     Active Substance: METOPROLOL TARTRATE
     Dosage: 50,MG,TWICE DAILY
     Route: 048
     Dates: start: 200102
  22. TRAMADOL. [Concomitant]
     Active Substance: TRAMADOL
     Dosage: 50,MG,AS NECESSARY
     Route: 048
     Dates: start: 20200428
  23. OXYCODONE [Concomitant]
     Active Substance: OXYCODONE
     Dosage: 10,MG,AS NECESSARY
     Route: 048
     Dates: start: 20200830
  24. COMPAZINE [PROCHLORPERAZINE EDISYLATE] [Concomitant]
     Active Substance: PROCHLORPERAZINE EDISYLATE
     Dosage: 10,MG,AS NECESSARY
     Route: 048
     Dates: start: 20200903
  25. LEVAQUIN [Concomitant]
     Active Substance: LEVOFLOXACIN
     Dosage: 500,MG,DAILY
     Route: 048
     Dates: start: 20200903
  26. MILK OF MAGNESIA [Concomitant]
     Active Substance: MAGNESIUM HYDROXIDE
     Dosage: 30,ML,AS NECESSARY
     Route: 048
     Dates: start: 20200906, end: 20200906
  27. KTE-X19 [Suspect]
     Active Substance: AXICABTAGENE CILOLEUCEL
     Indication: B-CELL LYMPHOMA REFRACTORY
     Dosage: 1 DOSAGE FORM, ONCE; 68
     Route: 042
     Dates: start: 20200831, end: 20200831
  28. IBRUTINIB [Suspect]
     Active Substance: IBRUTINIB
     Indication: PRODUCT USED FOR UNKNOWN INDICATION
     Dosage: 420
     Route: 048
     Dates: start: 20200714, end: 20200802
  29. ZOFRAN [Concomitant]
     Active Substance: ONDANSETRON HYDROCHLORIDE
     Dosage: 8,MG,AS NECESSARY
     Route: 042
     Dates: start: 20200905, end: 20200905
  30. BUPROPION HCL [Concomitant]
     Active Substance: BUPROPION HYDROCHLORIDE
     Dosage: 150,MG,DAILY
     Route: 048
     Dates: start: 20171208
  31. TRAZODONE [Concomitant]
     Active Substance: TRAZODONE HYDROCHLORIDE
     Dosage: 25,MG,AS NECESSARY
     Route: 048
     Dates: start: 20200519
  32. LOVENOX [LEVOFLOXACIN] [Concomitant]
     Active Substance: LEVOFLOXACIN
     Dosage: 40,MG,DAILY
     Route: 058
     Dates: start: 20200830
  33. MESALAMINE. [Concomitant]
     Active Substance: MESALAMINE
     Dosage: 400,MG,DAILY
     Route: 048
     Dates: start: 20200831
  34. ALLOPURINOL. [Concomitant]
     Active Substance: ALLOPURINOL
     Dosage: 300,MG,DAILY
     Route: 048
     Dates: start: 20200714
  35. BACTRIM [Concomitant]
     Active Substance: SULFAMETHOXAZOLE\TRIMETHOPRIM
     Dosage: 1,OTHER,DAILY
     Route: 048
     Dates: start: 20200903
  36. DEXAMETHASONE. [Suspect]
     Active Substance: DEXAMETHASONE
     Indication: PRODUCT USED FOR UNKNOWN INDICATION
     Dosage: UNK; 20
     Route: 048
     Dates: start: 20200708, end: 20200711
  37. CLARITIN [Concomitant]
     Active Substance: LORATADINE
     Dosage: 10,MG,DAILY
     Route: 048
     Dates: start: 20200403
  38. VENTOLIN HFA [Concomitant]
     Active Substance: ALBUTEROL SULFATE
     Dosage: 90,OTHER,AS NECESSARY
     Route: 055
     Dates: start: 20200428
  39. OXYCODONE [Concomitant]
     Active Substance: OXYCODONE
     Dosage: 5,MG,AS NECESSARY
     Route: 048
     Dates: start: 20200831

REACTIONS (4)
  - Neurotoxicity [Not Recovered/Not Resolved]
  - Encephalopathy [Fatal]
  - Hypotension [Recovered/Resolved]
  - Immune effector cell-associated neurotoxicity syndrome [Not Recovered/Not Resolved]

NARRATIVE: CASE EVENT DATE: 20200910
